FAERS Safety Report 12416157 (Version 1)
Quarter: 2016Q2

REPORT INFORMATION
  Report Type: Spontaneous
  Country: US (occurrence: US)
  Receive Date: 20160530
  Receipt Date: 20160530
  Transmission Date: 20160815
  Serious: Yes (Hospitalization)
  Sender: FDA-Public Use
  Company Number: US-UNITED THERAPEUTICS-UNT-2016-008364

PATIENT
  Age: 33 Year
  Sex: Female
  Weight: 75.28 kg

DRUGS (1)
  1. REMODULIN [Suspect]
     Active Substance: TREPROSTINIL
     Indication: PULMONARY HYPERTENSION
     Dosage: 0.047 ?G/KG, CONTINUING
     Route: 058
     Dates: start: 20150113

REACTIONS (2)
  - Pulmonary arterial hypertension [Unknown]
  - Respiratory failure [Unknown]

NARRATIVE: CASE EVENT DATE: 20160518
